FAERS Safety Report 6422233-5 (Version None)
Quarter: 2009Q4

REPORT INFORMATION
  Report Type: 
  Country: None (occurrence: None)
  Receive Date: 20091030
  Receipt Date: 20091020
  Transmission Date: 20100525
  Serious: Yes (Other)
  Sender: FDA-Public Use
  Company Number: US-JNJCH-2009028244

PATIENT
  Age: 8 Year
  Sex: Male
  Weight: 45.4 kg

DRUGS (6)
  1. BENADRYL D ALLERGY + SINUS [Suspect]
     Indication: SINUS DISORDER
     Dosage: TEXT:TWO TEASPOON ONCE
     Route: 048
  2. ADDERALL 10 [Concomitant]
     Indication: ATTENTION DEFICIT/HYPERACTIVITY DISORDER
     Dosage: TEXT:20MG UNSPECIFIED
     Route: 065
  3. RISPERDAL [Concomitant]
     Indication: ANXIETY DISORDER
     Dosage: TEXT:.25MG UNSPECIFIED
     Route: 065
  4. ADDERALL 10 [Concomitant]
     Dosage: TEXT:10MG UNSPECIFIED
     Route: 065
  5. RISPERDAL [Concomitant]
     Indication: NIGHTMARE
     Dosage: TEXT:.25MG UNSPECIFIED
     Route: 065
  6. RISPERDAL [Concomitant]
     Dosage: TEXT:1MG UNSPECIFIED
     Route: 065

REACTIONS (1)
  - AGGRESSION [None]
